FAERS Safety Report 9124908 (Version 1)
Quarter: 2013Q1

REPORT INFORMATION
  Report Type: Spontaneous
  Country: CH (occurrence: CH)
  Receive Date: 20130117
  Receipt Date: 20130117
  Transmission Date: 20140127
  Serious: Yes (Hospitalization)
  Sender: FDA-Public Use
  Company Number: PHHY2013CH002312

PATIENT
  Age: 66 Year
  Sex: Female

DRUGS (7)
  1. LEPONEX [Suspect]
     Indication: SCHIZOPHRENIA, PARANOID TYPE
     Dosage: 137.5 MG, UNK
     Route: 048
     Dates: end: 20121129
  2. SEROPRAM [Interacting]
     Indication: ANXIETY DISORDER
     Dosage: 20 MG, QD
     Route: 048
     Dates: end: 20121126
  3. ROCEPHIN [Suspect]
     Indication: PNEUMONIA ASPIRATION
     Route: 040
     Dates: start: 20121118
  4. STALEVO [Concomitant]
     Indication: PARKINSON^S DISEASE
     Dosage: 100 MG, 6QD
     Route: 048
     Dates: start: 2010
  5. STALEVO [Concomitant]
     Dosage: 25 MG, 6QD
  6. TEMESTA [Concomitant]
     Indication: ANXIETY DISORDER
     Dosage: 0.5 MG BID
     Route: 048
     Dates: end: 2012
  7. MADOPAR [Concomitant]
     Indication: PARKINSON^S DISEASE
     Dosage: UNK UKN, UNK

REACTIONS (3)
  - Fractured sacrum [Recovered/Resolved]
  - Epilepsy [Recovering/Resolving]
  - Foaming at mouth [Recovering/Resolving]
